FAERS Safety Report 17498004 (Version 1)
Quarter: 2020Q1

REPORT INFORMATION
  Report Type: Spontaneous
  Country: CN (occurrence: CN)
  Receive Date: 20200304
  Receipt Date: 20200304
  Transmission Date: 20200409
  Serious: Yes (Other)
  Sender: FDA-Public Use
  Company Number: CN-UCBSA-2020008668

PATIENT
  Age: 58 Year
  Sex: Female
  Weight: 40 kg

DRUGS (1)
  1. LEVETIRACETAM. [Suspect]
     Active Substance: LEVETIRACETAM
     Indication: EPILEPSY
     Dosage: 0.5 GRAM, ONCE DAILY (QD)
     Route: 048
     Dates: start: 20190215, end: 20190220

REACTIONS (3)
  - Off label use [Unknown]
  - Abdominal pain [Recovered/Resolved]
  - Diarrhoea [Recovering/Resolving]

NARRATIVE: CASE EVENT DATE: 20190215
